FAERS Safety Report 8376340-0 (Version None)
Quarter: 2012Q2

REPORT INFORMATION
  Report Type: 
  Country: None (occurrence: None)
  Receive Date: 20120518
  Receipt Date: 20120508
  Transmission Date: 20120825
  Serious: Yes (Death, Other)
  Sender: FDA-Public Use
  Company Number: 2012TR0166

PATIENT
  Sex: Male

DRUGS (1)
  1. ORFADIN [Suspect]
     Indication: TYROSINAEMIA
     Dosage: 0, 6 MG/KG

REACTIONS (4)
  - PNEUMONIA [None]
  - SEPSIS [None]
  - NERVOUS SYSTEM DISORDER [None]
  - NOSOCOMIAL INFECTION [None]
